FAERS Safety Report 16536323 (Version 2)
Quarter: 2019Q3

REPORT INFORMATION
  Report Type: Spontaneous
  Country: IT (occurrence: IT)
  Receive Date: 20190705
  Receipt Date: 20190726
  Transmission Date: 20191004
  Serious: Yes (Other)
  Sender: FDA-Public Use
  Company Number: IT-ASTRAZENECA-2019SE94583

PATIENT
  Sex: Male
  Weight: 87 kg

DRUGS (8)
  1. OMEPRAZOLE. [Concomitant]
     Active Substance: OMEPRAZOLE
     Dosage: 20.0MG UNKNOWN
  2. PLATINUM-BASED CHEMOTHERAPY [Concomitant]
     Active Substance: UNSPECIFIED INGREDIENT
     Dosage: AT LEAST 2 CYCLES OF CHEMORADIOTHERAPY
     Dates: end: 20190117
  3. DURVALUMAB. [Suspect]
     Active Substance: DURVALUMAB
     Dosage: IN TOTALLY 6 CYCLES
     Route: 042
     Dates: start: 20190403, end: 20190612
  4. PALEXIA [Concomitant]
     Active Substance: TAPENTADOL HYDROCHLORIDE
  5. CARBOPLATINUM [Concomitant]
     Active Substance: CARBOPLATIN
     Dosage: 5 CYCLES
  6. ADENURIC [Concomitant]
     Active Substance: FEBUXOSTAT
  7. DELTACORTENE [Concomitant]
     Active Substance: PREDNISONE
  8. PACLITAXEL. [Concomitant]
     Active Substance: PACLITAXEL
     Dosage: 5 CYCLES

REACTIONS (3)
  - Headache [Unknown]
  - Metastases to central nervous system [Unknown]
  - Malignant neoplasm progression [Unknown]
